FAERS Safety Report 8957214 (Version 6)
Quarter: 2014Q1

REPORT INFORMATION
  Report Type: Spontaneous
  Country: US (occurrence: US)
  Receive Date: 20121210
  Receipt Date: 20140304
  Transmission Date: 20141002
  Serious: Yes (Hospitalization, Other)
  Sender: FDA-Public Use
  Company Number: US-ROCHE-718961

PATIENT
  Age: 24 Year
  Sex: Female
  Weight: 62.6 kg

DRUGS (3)
  1. ACCUTANE [Suspect]
     Indication: ACNE
     Route: 065
     Dates: start: 1988, end: 1991
  2. ACCUTANE [Suspect]
     Route: 065
     Dates: start: 19930101, end: 19961231
  3. ACCUTANE [Suspect]
     Route: 065

REACTIONS (13)
  - Crohn^s disease [Unknown]
  - Intestinal obstruction [Unknown]
  - Gastrointestinal injury [Unknown]
  - Inflammatory bowel disease [Unknown]
  - Fistula [Unknown]
  - Depression [Unknown]
  - Acne [Unknown]
  - Epistaxis [Unknown]
  - Upper respiratory tract infection [Unknown]
  - Blood cholesterol increased [Unknown]
  - Dry skin [Unknown]
  - Anaemia [Unknown]
  - Arthralgia [Unknown]
